FAERS Safety Report 18391122 (Version 3)
Quarter: 2020Q4

REPORT INFORMATION
  Report Type: Spontaneous
  Country: RO (occurrence: RO)
  Receive Date: 20201015
  Receipt Date: 20201218
  Transmission Date: 20210114
  Serious: Yes (Other)
  Sender: FDA-Public Use
  Company Number: RO-ROCHE-2692044

PATIENT
  Age: 51 Year
  Sex: Male

DRUGS (17)
  1. GAZYVARO [Suspect]
     Active Substance: OBINUTUZUMAB
     Dosage: CYCLE 1
     Route: 042
     Dates: start: 20200527
  2. GAZYVARO [Suspect]
     Active Substance: OBINUTUZUMAB
     Dosage: OBI ONLY, CYCLE 7-8
     Route: 042
     Dates: start: 20201001
  3. LORATADINE. [Concomitant]
     Active Substance: LORATADINE
     Indication: PREMEDICATION
     Dosage: 30 MINUTES PRIOR TO INFUSION
  4. PARACETAMOL [Concomitant]
     Active Substance: ACETAMINOPHEN
     Indication: PREMEDICATION
     Dosage: 30 MINUTES PRIOR TO INFUSION
     Route: 048
  5. CONCOR [Concomitant]
     Active Substance: BISOPROLOL FUMARATE
  6. DOXORUBICIN HYDROCHLORIDE. [Suspect]
     Active Substance: DOXORUBICIN HYDROCHLORIDE
     Indication: B-CELL LYMPHOMA
     Route: 065
  7. VINCRISTINE SULFATE. [Suspect]
     Active Substance: VINCRISTINE SULFATE
     Indication: B-CELL LYMPHOMA
     Route: 065
  8. ENTECAVIR. [Concomitant]
     Active Substance: ENTECAVIR
     Indication: ANTIVIRAL TREATMENT
  9. GAZYVARO [Suspect]
     Active Substance: OBINUTUZUMAB
     Indication: B-CELL LYMPHOMA
     Dosage: CYCLE 1, CYCLE 7-8 WITH OBINUTUZUMAB ALONE: 01/OCT/2020 TO 03/NOV/2020
     Route: 042
     Dates: start: 20200506
  10. GAZYVARO [Suspect]
     Active Substance: OBINUTUZUMAB
     Dosage: CYCLE 1
     Route: 042
     Dates: start: 20200513
  11. CORLENTOR [Concomitant]
     Active Substance: IVABRADINE HYDROCHLORIDE
  12. GAZYVARO [Suspect]
     Active Substance: OBINUTUZUMAB
     Dosage: OBI+CHOP CYCLE 2-6
     Route: 042
     Dates: start: 20200604, end: 20200901
  13. DEXAMETHASONE. [Concomitant]
     Active Substance: DEXAMETHASONE
     Indication: PREMEDICATION
     Dosage: ONE HOUR BEFORE INFUSION
  14. ALLOPURINOL. [Concomitant]
     Active Substance: ALLOPURINOL
  15. PANTOPRAZOLE [Concomitant]
     Active Substance: PANTOPRAZOLE
  16. INDAPAMID [Concomitant]
     Active Substance: INDAPAMIDE
  17. CYCLOPHOSPHAMIDE. [Suspect]
     Active Substance: CYCLOPHOSPHAMIDE
     Indication: B-CELL LYMPHOMA
     Route: 065

REACTIONS (9)
  - Activated partial thromboplastin time prolonged [Unknown]
  - Mesenteric panniculitis [Unknown]
  - Computerised tomogram abnormal [Recovered/Resolved]
  - Lymphadenopathy [Recovered/Resolved]
  - Lymph nodes scan abnormal [Recovered/Resolved]
  - Platelet count increased [Unknown]
  - Granulomatous lymphadenitis [Recovered/Resolved]
  - Neutropenia [Unknown]
  - Blood creatinine increased [Unknown]

NARRATIVE: CASE EVENT DATE: 20200513
